FAERS Safety Report 8592878-5 (Version None)
Quarter: 2012Q3

REPORT INFORMATION
  Report Type: 
  Country: None (occurrence: None)
  Receive Date: 20120814
  Receipt Date: 20120731
  Transmission Date: 20120928
  Serious: Yes (Hospitalization)
  Sender: FDA-Public Use
  Company Number: IT-ROCHE-1095696

PATIENT
  Sex: Male

DRUGS (8)
  1. BECLOMETHASONE DIPROPIONATE [Suspect]
     Indication: PRODUCT USED FOR UNKNOWN INDICATION
     Route: 045
  2. CHLORPHENIRAMINE TAB [Concomitant]
     Route: 030
  3. ZOFRAN [Concomitant]
     Route: 042
  4. ACETAMINOPHEN [Concomitant]
     Route: 042
  5. OMEPRAZOLE [Concomitant]
     Route: 048
  6. CYCLOPHOSPHAMIDE [Concomitant]
     Route: 042
     Dates: start: 20120504, end: 20120619
  7. METHYLPREDNISOLONE [Concomitant]
     Route: 042
  8. MABTHERA [Suspect]
     Indication: MANTLE CELL LYMPHOMA RECURRENT
     Route: 042
     Dates: start: 20120423, end: 20120619

REACTIONS (5)
  - BRONCHOSPASM [None]
  - FLUSHING [None]
  - CHEST PAIN [None]
  - PRURITUS GENERALISED [None]
  - HOT FLUSH [None]
